FAERS Safety Report 13013545 (Version 1)
Quarter: 2016Q4

REPORT INFORMATION
  Report Type: Spontaneous
  Country: US (occurrence: US)
  Receive Date: 20161209
  Receipt Date: 20161209
  Transmission Date: 20170207
  Serious: Yes (Other)
  Sender: FDA-Public Use
  Company Number: US-BAYER-2016-228036

PATIENT

DRUGS (2)
  1. LEVAQUIN [Suspect]
     Active Substance: LEVOFLOXACIN
     Dosage: UNK
     Dates: start: 200401
  2. AVELOX [Suspect]
     Active Substance: MOXIFLOXACIN HYDROCHLORIDE
     Dosage: UNK
     Dates: start: 2004

REACTIONS (12)
  - Skin injury [None]
  - Cardiovascular disorder [None]
  - Burning sensation [None]
  - Sensory disturbance [None]
  - Pain [None]
  - Hypoaesthesia [None]
  - Asthenia [None]
  - Nervous system disorder [None]
  - Neuropathy peripheral [None]
  - Mental disorder [None]
  - Paraesthesia [None]
  - Musculoskeletal injury [None]
